FAERS Safety Report 21628557 (Version 1)
Quarter: 2022Q4

REPORT INFORMATION
  Report Type: Spontaneous
  Country: US (occurrence: None)
  Receive Date: 20221121
  Receipt Date: 20221121
  Transmission Date: 20230113
  Serious: Yes (Disabling)
  Sender: FDA-Public Use
  Company Number: None

PATIENT
  Age: 24 Year
  Sex: Female
  Weight: 49.95 kg

DRUGS (19)
  1. SUBOXONE [Suspect]
     Active Substance: BUPRENORPHINE HYDROCHLORIDE\NALOXONE HYDROCHLORIDE
     Indication: Pain
     Dosage: OTHER QUANTITY : 2 FILM;?FREQUENCY : DAILY;?
     Route: 060
     Dates: start: 20120402, end: 20170922
  2. EFFEXOR [Concomitant]
     Active Substance: VENLAFAXINE HYDROCHLORIDE
  3. ABILIFY [Concomitant]
     Active Substance: ARIPIPRAZOLE
  4. Adzenys XR-ODT (Amphetamine) [Concomitant]
  5. Toprol XL (Metoprolol Succinate) [Concomitant]
  6. ProAmatine (Midodrine) [Concomitant]
  7. ALLEGRA [Concomitant]
     Active Substance: FEXOFENADINE HYDROCHLORIDE
  8. Singulair (Montelukast Sodium) [Concomitant]
  9. XHANCE [Concomitant]
     Active Substance: FLUTICASONE PROPIONATE
  10. ATROVENT [Concomitant]
     Active Substance: IPRATROPIUM BROMIDE
  11. SYNTHROID [Concomitant]
     Active Substance: LEVOTHYROXINE SODIUM
  12. Cytomel (Liothyronine Sodium) [Concomitant]
  13. PROPECIA [Concomitant]
     Active Substance: FINASTERIDE
  14. PROTONIX [Concomitant]
     Active Substance: PANTOPRAZOLE SODIUM
  15. ZOFRAN [Concomitant]
     Active Substance: ONDANSETRON HYDROCHLORIDE
  16. Symbicort (Budesonide + Formoterol) [Concomitant]
  17. Xopenex HFA (Levalbuterol tartrate) [Concomitant]
  18. Qulipta (atogepant) [Concomitant]
  19. Ubrelvy (ubrogepant [Concomitant]

REACTIONS (4)
  - Dental caries [None]
  - Tooth erosion [None]
  - Tooth loss [None]
  - Mental disorder [None]

NARRATIVE: CASE EVENT DATE: 20150803
